FAERS Safety Report 5846316-3 (Version None)
Quarter: 2008Q3

REPORT INFORMATION
  Report Type: 
  Country: None (occurrence: None)
  Receive Date: 20080815
  Receipt Date: 20080724
  Transmission Date: 20090109
  Serious: No
  Sender: FDA-Public Use
  Company Number: US-BAYER-200829677NA

PATIENT
  Age: 53 Year
  Sex: Female
  Weight: 67 kg

DRUGS (4)
  1. MAGNEVIST [Suspect]
     Indication: NUCLEAR MAGNETIC RESONANCE IMAGING BRAIN
     Dosage: TOTAL DAILY DOSE: 6 ML  UNIT DOSE: 15 ML
     Dates: start: 20080721, end: 20080721
  2. METHLYTREXATE [Concomitant]
  3. FOLIC ACID [Concomitant]
  4. BLOOD PRESSURE MEDICATIONS [Concomitant]

REACTIONS (2)
  - NERVOUSNESS [None]
  - PRURITUS [None]
